FAERS Safety Report 16257598 (Version 4)
Quarter: 2019Q2

REPORT INFORMATION
  Report Type: Spontaneous
  Country: RU (occurrence: RU)
  Receive Date: 20190430
  Receipt Date: 20190515
  Transmission Date: 20190711
  Serious: Yes (Other)
  Sender: FDA-Public Use
  Company Number: PHHY2019RU096573

PATIENT
  Sex: Male
  Weight: .86 kg

DRUGS (12)
  1. ENALAPRIL [Suspect]
     Active Substance: ENALAPRIL
     Indication: FOETAL EXPOSURE DURING PREGNANCY
     Dosage: MATERNAL DOSE:10 MG TWICE DAILY
     Route: 064
     Dates: end: 20180212
  2. AMLODIPINE [Suspect]
     Active Substance: AMLODIPINE BESYLATE
     Indication: FOETAL EXPOSURE DURING PREGNANCY
     Dosage: MATERNAL DOSE: 5 MG ONCE DAILY
     Route: 064
     Dates: start: 20180307
  3. ACETYLSALICYLIC ACID [Suspect]
     Active Substance: ASPIRIN
     Indication: FOETAL EXPOSURE DURING PREGNANCY
     Dosage: UNK
     Route: 064
     Dates: start: 20180307, end: 20180608
  4. CLOPIDOGREL [Suspect]
     Active Substance: CLOPIDOGREL BISULFATE
     Indication: FOETAL EXPOSURE DURING PREGNANCY
     Dosage: MATERNAL DOSE: 100 MG + 75 MG ONCE DAILY
     Route: 064
     Dates: end: 20180212
  5. ENOXAPARIN SODIUM. [Suspect]
     Active Substance: ENOXAPARIN SODIUM
     Indication: FOETAL EXPOSURE DURING PREGNANCY
     Dosage: MATERNAL DOSE: .4 ML SUBCUTANEOUSLY ONCE DAILY
     Route: 064
     Dates: start: 20180212
  6. SPIRONOLACTONE. [Suspect]
     Active Substance: SPIRONOLACTONE
     Indication: FOETAL EXPOSURE DURING PREGNANCY
     Dosage: MATERNAL DOSE: 25 MG ONCE DAILY
     Route: 064
     Dates: end: 20180212
  7. ATORVASTATIN [Suspect]
     Active Substance: ATORVASTATIN
     Indication: FOETAL EXPOSURE DURING PREGNANCY
     Dosage: MATERNAL DOSE: 20 MG ONCE DAILY
     Route: 064
     Dates: end: 20180212
  8. METOPROLOL. [Suspect]
     Active Substance: METOPROLOL
     Indication: FOETAL EXPOSURE DURING PREGNANCY
     Dosage: MATERNAL DOSE: 25 MG 3 TIMES A DAY
     Route: 064
     Dates: start: 20180307, end: 20180608
  9. HYDROCHLOROTHIAZIDE. [Suspect]
     Active Substance: HYDROCHLOROTHIAZIDE
     Indication: FOETAL EXPOSURE DURING PREGNANCY
     Dosage: MATERNAL DOSE: 25 MG ONCE DAILY
     Route: 064
     Dates: end: 20180212
  10. BISOPROLOL [Suspect]
     Active Substance: BISOPROLOL
     Indication: FOETAL EXPOSURE DURING PREGNANCY
     Dosage: MATERNAL DOSE: 2.5 MG  QD
     Route: 064
     Dates: end: 20180212
  11. ENALAPRIL [Suspect]
     Active Substance: ENALAPRIL
     Dosage: UNK
     Route: 064
  12. METHYLDOPA. [Suspect]
     Active Substance: METHYLDOPA
     Indication: FOETAL EXPOSURE DURING PREGNANCY
     Dosage: MATERNAL DOSE: 250 MG TWO TABLETS 3 TIMES A DAY
     Route: 064
     Dates: start: 20180212

REACTIONS (4)
  - Premature baby [Unknown]
  - Haemodynamic instability [Unknown]
  - Foetal exposure during pregnancy [Unknown]
  - Low birth weight baby [Unknown]
